FAERS Safety Report 4426906-5 (Version None)
Quarter: 2004Q3

REPORT INFORMATION
  Report Type: 
  Country: None (occurrence: None)
  Receive Date: 20040811
  Receipt Date: 20040805
  Transmission Date: 20050211
  Serious: Yes (Hospitalization, Other)
  Sender: FDA-Public Use
  Company Number: FR8926109MAR2002

PATIENT
  Age: 58 Year
  Sex: Male

DRUGS (4)
  1. TAZOCILLINE (PIPERACILLIN/TAZOBACTAM, INJECTION) [Suspect]
     Indication: PERITONITIS
     Dosage: 12 G 1X PER 1 DAY INTRAVENOUS : 12 G 1X PER 1 DAY INTRAVENOUS : 40 MG 1X PER 1 DAY INTRAVENOUS
     Route: 042
     Dates: start: 20011015, end: 20011025
  2. TAZOCILLINE (PIPERACILLIN/TAZOBACTAM, INJECTION) [Suspect]
     Indication: PERITONITIS
     Dosage: 12 G 1X PER 1 DAY INTRAVENOUS : 12 G 1X PER 1 DAY INTRAVENOUS : 40 MG 1X PER 1 DAY INTRAVENOUS
     Route: 042
     Dates: start: 20011105, end: 20011115
  3. TAZOCILLINE (PIPERACILLIN/TAZOBACTAM, INJECTION) [Suspect]
     Indication: PERITONITIS
     Dosage: 12 G 1X PER 1 DAY INTRAVENOUS : 12 G 1X PER 1 DAY INTRAVENOUS : 40 MG 1X PER 1 DAY INTRAVENOUS
     Route: 042
     Dates: start: 20011015, end: 20011115
  4. AMIKACIN [Concomitant]

REACTIONS (2)
  - HEPATITIS CHOLESTATIC [None]
  - PANCREATIC ENZYMES INCREASED [None]
